FAERS Safety Report 10365722 (Version 1)
Quarter: 2014Q1

REPORT INFORMATION
  Report Type: Spontaneous
  Country: US (occurrence: None)
  Receive Date: 20140306
  Receipt Date: 20140306
  Transmission Date: 20141002
  Serious: Yes (Other)
  Sender: FDA-Public Use
  Company Number: 163-21880-13091947

PATIENT
  Age: 60 Year
  Sex: Male

DRUGS (12)
  1. REVLIMID (LENALIDOMIDE) (15 MILLIGRAM, CAPSULES) [Suspect]
     Indication: PLASMA CELL MYELOMA
     Route: 048
     Dates: start: 20120123
  2. VIAGRA (SILDENAFIL CITRATE) [Concomitant]
  3. GABAPENTIN [Concomitant]
  4. FAMOTIDINE [Concomitant]
  5. VALTREX (VALACICLOVIR HYDROCHLORIDE) [Concomitant]
  6. ASPIRIN (ACETYLSALICYLIC ACID) [Concomitant]
  7. SEROQUEL (QUETIAPINE FUMARATE) [Concomitant]
  8. FLOMAX (TAMSULOSIN HYDROCHLORIDE) [Concomitant]
  9. TRAMADOL [Concomitant]
  10. FLEXERIL (CYCLOBENZAPRINE HYDROCHLORIDE) [Concomitant]
  11. MULTIVITAMINS [Concomitant]
  12. OMEPRAZOLE [Concomitant]

REACTIONS (1)
  - Deep vein thrombosis [None]
